FAERS Safety Report 5050051-1 (Version None)
Quarter: 2006Q2

REPORT INFORMATION
  Report Type: 
  Country: None (occurrence: None)
  Receive Date: 20060601
  Receipt Date: 20060227
  Transmission Date: 20061013
  Serious: No
  Sender: FDA-Public Use
  Company Number: US200602005445

PATIENT
  Age: 60 Year
  Sex: Female

DRUGS (6)
  1. CYMBALTA [Suspect]
     Indication: DIABETIC NEUROPATHY
     Dosage: 30 MG
     Dates: start: 20060101
  2. OXYGEN (OXYGEN) [Concomitant]
  3. SEREVENT /UNK/ (SALMETEROL XINAFOATE) [Concomitant]
  4. SPIRIVA [Concomitant]
  5. PLAVIX [Concomitant]
  6. LANTUS [Concomitant]

REACTIONS (3)
  - BOWEL SOUNDS ABNORMAL [None]
  - DIARRHOEA [None]
  - DRY MOUTH [None]
